FAERS Safety Report 24300508 (Version 1)
Quarter: 2024Q3

REPORT INFORMATION
  Report Type: Spontaneous
  Country: JP (occurrence: JP)
  Receive Date: 20240910
  Receipt Date: 20240910
  Transmission Date: 20241017
  Serious: Yes (Hospitalization, Other)
  Sender: STRIDES
  Company Number: JP-STRIDES ARCOLAB LIMITED-2024SP011363

PATIENT
  Age: 58 Year
  Sex: Female

DRUGS (3)
  1. ETOPOSIDE [Suspect]
     Active Substance: ETOPOSIDE
     Indication: Neuroendocrine carcinoma of the skin
     Dosage: UNK
     Route: 065
  2. CARBOPLATIN [Suspect]
     Active Substance: CARBOPLATIN
     Indication: Neuroendocrine carcinoma of the skin
     Dosage: UNK
     Route: 065
  3. AVELUMAB [Suspect]
     Active Substance: AVELUMAB
     Indication: Neuroendocrine carcinoma of the skin
     Dosage: 10 MILLIGRAM/KILOGRAM, EVERY 2 WEEKS (RECEIVED 8 DOSES)
     Route: 065

REACTIONS (3)
  - Tumour lysis syndrome [Unknown]
  - Therapy non-responder [Unknown]
  - Off label use [Unknown]
